FAERS Safety Report 9291765 (Version 2)
Quarter: 2013Q2

REPORT INFORMATION
  Report Type: Spontaneous
  Country: AU (occurrence: AU)
  Receive Date: 20130516
  Receipt Date: 20130523
  Transmission Date: 20140414
  Serious: Yes (Other)
  Sender: FDA-Public Use
  Company Number: AU-ROCHE-1225088

PATIENT
  Sex: Female

DRUGS (10)
  1. HERCEPTIN [Suspect]
     Indication: BREAST CANCER METASTATIC
     Route: 065
  2. XELODA [Suspect]
     Indication: BREAST CANCER METASTATIC
     Route: 065
  3. TAMOXIFEN [Concomitant]
  4. FLUOROURACIL [Concomitant]
  5. DOXORUBICIN [Concomitant]
  6. CYCLOPHOSPHAMIDE [Concomitant]
  7. ABRAXANE [Concomitant]
  8. VINORELBINE [Concomitant]
  9. PACLITAXEL [Concomitant]
  10. LAPATINIB [Concomitant]

REACTIONS (1)
  - Metastases to bone [Unknown]
